FAERS Safety Report 7783419-0 (Version None)
Quarter: 2011Q3

REPORT INFORMATION
  Report Type: 
  Country: None (occurrence: None)
  Receive Date: 20110928
  Receipt Date: 20110928
  Transmission Date: 20111222
  Serious: Yes (Life-Threatening, Hospitalization, Other)
  Sender: FDA-Public Use
  Company Number: None

PATIENT
  Age: 64 Year
  Sex: Male

DRUGS (2)
  1. LISINOPRIL [Suspect]
     Dosage: 10 TO 20 TO 40 MG
     Route: 048
     Dates: start: 20101001, end: 20110603
  2. LITHIUM [Concomitant]
     Dosage: 2 TABLETS

REACTIONS (5)
  - HYPONATRAEMIA [None]
  - DRUG LEVEL INCREASED [None]
  - CONTRAINDICATION TO MEDICAL TREATMENT [None]
  - TOXICITY TO VARIOUS AGENTS [None]
  - DRUG INTERACTION [None]
